FAERS Safety Report 12734252 (Version 1)
Quarter: 2016Q3

REPORT INFORMATION
  Report Type: Spontaneous
  Country: US (occurrence: US)
  Receive Date: 20160912
  Receipt Date: 20160912
  Transmission Date: 20161109
  Serious: Yes (Other)
  Sender: FDA-Public Use
  Company Number: None

PATIENT
  Age: 67 Year
  Sex: Female
  Weight: 51.71 kg

DRUGS (5)
  1. GINGER ROOT [Concomitant]
     Active Substance: GINGER
  2. NEOMYCIN-POLYMYZIN [Concomitant]
  3. VITAMIN D3 [Concomitant]
     Active Substance: CHOLECALCIFEROL
  4. CIPRODEX [Suspect]
     Active Substance: CIPROFLOXACIN HYDROCHLORIDE\DEXAMETHASONE
     Indication: EAR INFECTION
     Dosage: TWICE DAILY IN EAR (R)
     Dates: start: 20160808, end: 20160808
  5. GARLIC. [Concomitant]
     Active Substance: GARLIC

REACTIONS (4)
  - Ear discomfort [None]
  - Presyncope [None]
  - Gait disturbance [None]
  - Dizziness [None]

NARRATIVE: CASE EVENT DATE: 20160808
